FAERS Safety Report 8473811-3 (Version None)
Quarter: 2012Q2

REPORT INFORMATION
  Report Type: 
  Country: None (occurrence: None)
  Receive Date: 20120628
  Receipt Date: 20111209
  Transmission Date: 20120825
  Serious: Yes (Death)
  Sender: FDA-Public Use
  Company Number: US-MYLANLABS-2011S1024541

PATIENT
  Age: 82 Year
  Sex: Male

DRUGS (11)
  1. HALOPERIDOL [Concomitant]
  2. ALBUTEROL [Concomitant]
  3. ATROPINE [Concomitant]
     Route: 047
  4. LASIX [Concomitant]
  5. POTASSIUM ACETATE [Concomitant]
  6. MORPHINE [Concomitant]
  7. ACETAMINOPHEN [Concomitant]
  8. CLOZAPINE [Suspect]
     Route: 048
  9. LORAZEPAM [Concomitant]
  10. SCOPOLAMINE [Concomitant]
  11. VASOTEC [Concomitant]

REACTIONS (1)
  - CORONARY ARTERY DISEASE [None]
